FAERS Safety Report 13912455 (Version 8)
Quarter: 2020Q1

REPORT INFORMATION
  Report Type: Spontaneous
  Country: US (occurrence: US)
  Receive Date: 20170828
  Receipt Date: 20200109
  Transmission Date: 20200409
  Serious: Yes (Hospitalization, Other)
  Sender: FDA-Public Use
  Company Number: US-PFIZER INC-2017174213

PATIENT
  Age: 13 Year
  Sex: Male

DRUGS (3)
  1. GENOTROPIN [Suspect]
     Active Substance: SOMATROPIN
     Dosage: 1.2 MG, UNK
     Dates: start: 20170317
  2. GENOTROPIN [Suspect]
     Active Substance: SOMATROPIN
     Indication: GROWTH HORMONE DEFICIENCY
     Dosage: 1.6 MG, ONCE DAILY (EVERY EVENING)
     Route: 058
     Dates: start: 20170425, end: 2017
  3. GENOTROPIN [Suspect]
     Active Substance: SOMATROPIN
     Dosage: 1.6 MG, ONCE DAILY (EVERY EVENING)
     Route: 058
     Dates: start: 20170717

REACTIONS (19)
  - Incorrect dose administered [Unknown]
  - Bone density increased [Unknown]
  - White blood cell count increased [Unknown]
  - Mean platelet volume decreased [Unknown]
  - Protein total increased [Unknown]
  - Device failure [Unknown]
  - Anticonvulsant drug level below therapeutic [Unknown]
  - Limb injury [Unknown]
  - Blood insulin increased [Unknown]
  - Condition aggravated [Unknown]
  - Device leakage [Unknown]
  - Lymphocyte count decreased [Unknown]
  - Monocyte count increased [Unknown]
  - Blood glucose increased [Unknown]
  - Neutrophil count increased [Unknown]
  - Blood chloride decreased [Unknown]
  - Blood alkaline phosphatase increased [Unknown]
  - Cerebral palsy [Unknown]
  - Insulin-like growth factor increased [Unknown]

NARRATIVE: CASE EVENT DATE: 201704
